FAERS Safety Report 7430109-X (Version None)
Quarter: 2011Q2

REPORT INFORMATION
  Report Type: 
  Country: None (occurrence: None)
  Receive Date: 20110421
  Receipt Date: 20101004
  Transmission Date: 20111010
  Serious: Yes (Hospitalization, Other)
  Sender: FDA-Public Use
  Company Number: US-ASTRAZENECA-2010SE21450

PATIENT
  Age: 80 Year
  Sex: Female

DRUGS (14)
  1. TOPROL-XL [Suspect]
     Route: 048
     Dates: start: 20081202
  2. ARICEPT [Concomitant]
  3. TOPROL-XL [Suspect]
     Route: 048
     Dates: start: 19880101
  4. TOPROL-XL [Suspect]
     Route: 048
  5. LASIX [Concomitant]
  6. ASPIRIN [Concomitant]
  7. ACTONEL [Concomitant]
  8. ESTRADIOL [Concomitant]
  9. SIMVASTATIN [Concomitant]
  10. LISINOPRIL [Concomitant]
     Route: 048
  11. CITALOPRAM HYDROBROMIDE [Concomitant]
  12. NAMENDA [Concomitant]
     Route: 048
  13. TOPROL-XL [Suspect]
     Route: 048
     Dates: start: 20081203
  14. CELEBREX [Concomitant]
     Dosage: 20 MG 1-1/2 TABS DAILY

REACTIONS (2)
  - BRADYCARDIA [None]
  - SYNCOPE [None]
